FAERS Safety Report 9567418 (Version 1)
Quarter: 2013Q3

REPORT INFORMATION
  Report Type: Spontaneous
  Country: US (occurrence: US)
  Receive Date: 20130930
  Receipt Date: 20130930
  Transmission Date: 20140515
  Serious: No
  Sender: FDA-Public Use
  Company Number: US-AMGEN-USASP2012062720

PATIENT
  Age: 60 Year
  Sex: Male
  Weight: 79.37 kg

DRUGS (11)
  1. ENBREL [Suspect]
     Indication: PSORIASIS
     Dosage: UNK
     Dates: start: 2010, end: 201202
  2. ENBREL [Suspect]
     Indication: PSORIATIC ARTHROPATHY
  3. ALLEGRA [Concomitant]
     Dosage: UNK
  4. ASA [Concomitant]
     Dosage: UNK
  5. CALCIUM [Concomitant]
     Dosage: UNK
  6. FISH OIL [Concomitant]
     Dosage: UNK
  7. GLUCOS [Concomitant]
     Dosage: UNK
  8. CHONDNAL [Concomitant]
     Dosage: UNK
  9. METHOTREXATE [Concomitant]
     Dosage: UNK
  10. PROBIOTIC                          /06395501/ [Concomitant]
     Dosage: UNK
  11. VITAMIN D                          /00107901/ [Concomitant]
     Dosage: UNK

REACTIONS (1)
  - Therapeutic response decreased [Unknown]
